FAERS Safety Report 20135070 (Version 1)
Quarter: 2021Q4

REPORT INFORMATION
  Report Type: Spontaneous
  Country: US (occurrence: None)
  Receive Date: 20211130
  Receipt Date: 20211130
  Transmission Date: 20220303
  Serious: Yes (Hospitalization)
  Sender: FDA-Public Use
  Company Number: None

PATIENT
  Age: 74 Year
  Sex: Female
  Weight: 60.9 kg

DRUGS (1)
  1. CASIRIVIMAB\IMDEVIMAB [Suspect]
     Active Substance: CASIRIVIMAB\IMDEVIMAB
     Indication: COVID-19
     Dosage: FREQUENCY : ONCE;?
     Route: 058
     Dates: start: 20211117, end: 20211117

REACTIONS (8)
  - Encephalopathy [None]
  - Central nervous system infection [None]
  - Sepsis [None]
  - Treatment noncompliance [None]
  - Lacunar infarction [None]
  - Seizure [None]
  - Dementia [None]
  - Cerebrovascular accident [None]

NARRATIVE: CASE EVENT DATE: 20211119
